FAERS Safety Report 11640831 (Version 1)
Quarter: 2015Q4

REPORT INFORMATION
  Report Type: Spontaneous
  Country: US (occurrence: US)
  Receive Date: 20151019
  Receipt Date: 20151019
  Transmission Date: 20160304
  Serious: No
  Sender: FDA-Public Use
  Company Number: US-GLAXOSMITHKLINE-US2015146718

PATIENT
  Age: 80 Year
  Sex: Female

DRUGS (1)
  1. ANORO ELLIPTA [Suspect]
     Active Substance: UMECLIDINIUM BROMIDE\VILANTEROL TRIFENATATE
     Indication: PRODUCT USED FOR UNKNOWN INDICATION
     Dosage: UNK
     Route: 065
     Dates: end: 20150913

REACTIONS (5)
  - Balance disorder [Recovering/Resolving]
  - Dizziness [Recovering/Resolving]
  - Nausea [Recovering/Resolving]
  - Vision blurred [Recovering/Resolving]
  - Asthenia [Recovering/Resolving]
